FAERS Safety Report 8485109-8 (Version None)
Quarter: 2012Q3

REPORT INFORMATION
  Report Type: 
  Country: None (occurrence: None)
  Receive Date: 20120703
  Receipt Date: 20120626
  Transmission Date: 20120928
  Serious: Yes (Life-Threatening)
  Sender: FDA-Public Use
  Company Number: JP-PFIZER INC-2012040934

PATIENT
  Age: 35 Year
  Sex: Female
  Weight: 75 kg

DRUGS (13)
  1. NORGESTREL AND ETHINYL ESTRADIOL [Concomitant]
     Indication: MENORRHAGIA
     Dosage: 1 TABLET DAILY
     Route: 048
     Dates: start: 20111012, end: 20111108
  2. ZOSYN [Suspect]
     Dosage: UNK
     Route: 041
     Dates: start: 20111105, end: 20111107
  3. PREDNISOLONE SODIUM SUCCINATE INJ [Concomitant]
     Indication: CYTARABINE SYNDROME
     Dosage: 40 MG/DAY
     Route: 041
     Dates: start: 20111019, end: 20111020
  4. VANCOMYCIN [Suspect]
     Indication: FEBRILE NEUTROPENIA
     Dosage: 2 G/ DAY
     Route: 041
     Dates: start: 20111027, end: 20111104
  5. LOXOPROFEN [Suspect]
     Indication: FEBRILE NEUTROPENIA
     Dosage: 60-120 MG/ DAY
     Route: 048
     Dates: start: 20111022, end: 20111031
  6. CYTARABINE [Concomitant]
     Indication: ACUTE MYELOID LEUKAEMIA
     Dosage: 180 MG/ DAY
     Route: 041
     Dates: start: 20111012, end: 20111018
  7. MAXIPIME [Concomitant]
     Indication: FEBRILE NEUTROPENIA
     Dosage: 3 G/ DAY
     Route: 041
     Dates: start: 20111021, end: 20111027
  8. MEROPENEM [Suspect]
     Indication: FEBRILE NEUTROPENIA
     Dosage: 2-3 G/ DAY
     Route: 041
     Dates: start: 20111026, end: 20111103
  9. ZOSYN [Suspect]
     Indication: DEVICE RELATED INFECTION
     Dosage: 4.5 G, 3X/DAY
     Route: 041
     Dates: start: 20111017, end: 20111021
  10. FLURBIPROFEN [Suspect]
     Indication: FEBRILE NEUTROPENIA
     Dosage: 50 MG/ DAY
     Route: 041
     Dates: start: 20111021, end: 20111021
  11. AMIKACIN [Concomitant]
     Indication: FEBRILE NEUTROPENIA
     Dosage: 400 MG/ DAY
     Route: 041
     Dates: start: 20111021, end: 20111026
  12. AMBISOME [Concomitant]
     Indication: FEBRILE NEUTROPENIA
     Dosage: 150 MG/ DAY
     Route: 041
     Dates: start: 20111025, end: 20111027
  13. FUNGUARD [Concomitant]
     Indication: FEBRILE NEUTROPENIA
     Dosage: 150 MG/ DAY
     Route: 041
     Dates: start: 20111028, end: 20111103

REACTIONS (1)
  - TUBULOINTERSTITIAL NEPHRITIS [None]
